FAERS Safety Report 12054396 (Version 1)
Quarter: 2016Q1

REPORT INFORMATION
  Report Type: Spontaneous
  Country: US (occurrence: US)
  Receive Date: 20160209
  Receipt Date: 20160209
  Transmission Date: 20160526
  Serious: No
  Sender: FDA-Public Use
  Company Number: US-BAYER-2016-020304

PATIENT
  Age: 71 Year
  Sex: Male
  Weight: 72.56 kg

DRUGS (1)
  1. CLARITIN [Suspect]
     Active Substance: LORATADINE
     Indication: SKIN DISORDER
     Dosage: UNK
     Route: 048

REACTIONS (1)
  - Off label use [None]
